FAERS Safety Report 8012475-X (Version None)
Quarter: 2011Q4

REPORT INFORMATION
  Report Type: 
  Country: None (occurrence: None)
  Receive Date: 20111228
  Receipt Date: 20111214
  Transmission Date: 20120403
  Serious: Yes (Congenital Anomaly)
  Sender: FDA-Public Use
  Company Number: US-AMGEN-USASP2011068451

PATIENT

DRUGS (5)
  1. DIAZEPAM [Concomitant]
     Dosage: UNK
     Route: 064
  2. NAPROXEN [Concomitant]
     Dosage: UNK
     Route: 064
  3. ENBREL [Suspect]
     Indication: PRODUCT USED FOR UNKNOWN INDICATION
     Dosage: UNK
     Route: 064
  4. METHOTREXATE [Concomitant]
     Dosage: UNK
     Route: 064
  5. PREDNISONE TAB [Concomitant]
     Dosage: UNK
     Route: 064

REACTIONS (2)
  - CONGENITAL CYSTIC KIDNEY DISEASE [None]
  - FOETAL EXPOSURE DURING PREGNANCY [None]
